FAERS Safety Report 4910797-X (Version None)
Quarter: 2006Q1

REPORT INFORMATION
  Report Type: 
  Country: None (occurrence: None)
  Receive Date: 20060210
  Receipt Date: 20060210
  Transmission Date: 20060701
  Serious: Yes (Hospitalization)
  Sender: FDA-Public Use
  Company Number: None

PATIENT
  Sex: Male
  Weight: 7 kg

DRUGS (2)
  1. VINCRISTINE SULFATE [Suspect]
     Indication: ACUTE LYMPHOCYTIC LEUKAEMIA
     Dosage: .8 MG
     Dates: start: 20060124, end: 20060131
  2. PREDNISONE [Suspect]
     Dosage: 210 MG
     Dates: end: 20060206

REACTIONS (10)
  - CENTRAL LINE INFECTION [None]
  - CORYNEBACTERIUM INFECTION [None]
  - CRYING [None]
  - DISEASE PROGRESSION [None]
  - DISEASE RECURRENCE [None]
  - FREQUENT BOWEL MOVEMENTS [None]
  - HAEMATOCHEZIA [None]
  - MUCOUS STOOLS [None]
  - ORAL INTAKE REDUCED [None]
  - PNEUMATOSIS INTESTINALIS [None]
